FAERS Safety Report 24769463 (Version 1)
Quarter: 2024Q4

REPORT INFORMATION
  Report Type: Spontaneous
  Country: US (occurrence: US)
  Receive Date: 20241224
  Receipt Date: 20241224
  Transmission Date: 20250114
  Serious: Yes (Other)
  Sender: BIONPHARMA INC.
  Company Number: US-Bion-014592

PATIENT
  Sex: Female

DRUGS (1)
  1. ERGOCALCIFEROL [Suspect]
     Active Substance: ERGOCALCIFEROL
     Indication: Vitamin D deficiency
     Dosage: 50000?UNITS
     Route: 048

REACTIONS (1)
  - Foreign body in throat [Unknown]
